FAERS Safety Report 14202704 (Version 2)
Quarter: 2017Q4

REPORT INFORMATION
  Report Type: Spontaneous
  Country: US (occurrence: US)
  Receive Date: 20171118
  Receipt Date: 20171205
  Transmission Date: 20180321
  Serious: Yes (Other)
  Sender: FDA-Public Use
  Company Number: US-ACCORD-061065

PATIENT
  Age: 46 Year
  Sex: Female

DRUGS (1)
  1. FUROSEMIDE. [Suspect]
     Active Substance: FUROSEMIDE
     Indication: GENERALISED OEDEMA
     Dosage: INCREASING DOSES (UP TO 600 MG DAILY)

REACTIONS (2)
  - Ototoxicity [Not Recovered/Not Resolved]
  - Deafness neurosensory [Not Recovered/Not Resolved]
